FAERS Safety Report 25327302 (Version 1)
Quarter: 2025Q2

REPORT INFORMATION
  Report Type: Spontaneous
  Country: NL (occurrence: NL)
  Receive Date: 20250517
  Receipt Date: 20250517
  Transmission Date: 20250717
  Serious: Yes (Hospitalization, Other)
  Sender: MERCK SHARP & DOHME LLC
  Company Number: None

PATIENT
  Age: 68 Year
  Sex: Male
  Weight: 82.9 kg

DRUGS (14)
  1. PEMBROLIZUMAB [Suspect]
     Active Substance: PEMBROLIZUMAB
     Indication: Non-small cell lung cancer
     Dates: start: 20241217
  2. CARBOPLATIN [Concomitant]
     Active Substance: CARBOPLATIN
  3. PACLITAXEL [Concomitant]
     Active Substance: PACLITAXEL
  4. OMEPRAZOLE [Concomitant]
     Active Substance: OMEPRAZOLE
     Route: 048
  5. BISACODYL [Concomitant]
     Active Substance: BISACODYL
     Route: 048
  6. METOCLOPRAMIDE [Concomitant]
     Active Substance: METOCLOPRAMIDE
     Route: 048
  7. SIMVASTATIN [Concomitant]
     Active Substance: SIMVASTATIN
     Route: 048
  8. ACETYLSALICYLIC ACID TABLET 80MG / Brand name not specified [Concomitant]
     Route: 048
  9. ALENDRONIC ACID TABLET 70MG / Brand name not specified [Concomitant]
     Route: 048
  10. COLECALCIFEROL TABLET 5600IU / Brand name not specified [Concomitant]
     Route: 048
  11. FENTANYL [Concomitant]
     Active Substance: FENTANYL
     Route: 060
  12. FENTANYL [Concomitant]
     Active Substance: FENTANYL
     Route: 062
  13. MACROGOL/SALTING DRINK / Brand name not specified [Concomitant]
  14. ACETAMINOPHEN [Concomitant]
     Active Substance: ACETAMINOPHEN
     Route: 048

REACTIONS (3)
  - Cholangitis [Recovered/Resolved]
  - Pancreatitis [Recovered/Resolved]
  - Hyperthyroidism [Unknown]
